FAERS Safety Report 23815943 (Version 5)
Quarter: 2024Q4

REPORT INFORMATION
  Report Type: Spontaneous
  Country: AT (occurrence: AT)
  Receive Date: 20240503
  Receipt Date: 20241129
  Transmission Date: 20250114
  Serious: Yes (Hospitalization, Other)
  Sender: HRA PHARMA
  Company Number: AT-ORG100014127-2024000121

PATIENT
  Age: 60 Year
  Sex: Female

DRUGS (3)
  1. LYSODREN [Suspect]
     Active Substance: MITOTANE
     Indication: Adrenocortical carcinoma
     Dosage: 4 TABLETS DAILY
     Dates: start: 20230313
  2. Euthyrox 75?g [Concomitant]
     Indication: Product used for unknown indication
     Dosage: HALF A TABLET DAILY
  3. HYDROCORTONE [Concomitant]
     Active Substance: HYDROCORTISONE
     Indication: Product used for unknown indication

REACTIONS (3)
  - Cerebrovascular accident [Recovering/Resolving]
  - Infarction [Recovering/Resolving]
  - Hypercholesterolaemia [Unknown]

NARRATIVE: CASE EVENT DATE: 20240331
